FAERS Safety Report 7359370 (Version 12)
Quarter: 2013Q3

REPORT INFORMATION
  Report Type: Spontaneous
  Country: US (occurrence: US)
  Receive Date: 20100419
  Receipt Date: 20130719
  Transmission Date: 20140515
  Serious: Yes (Hospitalization, Disabling, Other)
  Sender: FDA-Public Use
  Company Number: US-009507513-1004USA01671

PATIENT
  Sex: Female
  Weight: 71.2 kg

DRUGS (9)
  1. FOSAMAX [Suspect]
     Indication: OSTEOPENIA
     Dosage: 10 MG, QD
     Route: 048
     Dates: start: 199812, end: 200412
  2. FOSAMAX [Suspect]
     Dosage: 70 MG, QW
     Route: 048
     Dates: end: 200412
  3. FOSAMAX [Suspect]
     Dosage: UNK
     Route: 048
     Dates: start: 1998, end: 2007
  4. BONIVA [Suspect]
     Indication: OSTEOPOROSIS
     Dosage: 150 MG, UNK
     Dates: start: 2006, end: 201009
  5. BLOCADREN [Concomitant]
     Route: 048
  6. ESTROGENS (UNSPECIFIED) [Concomitant]
     Indication: BONE DISORDER
  7. LISINOPRIL [Concomitant]
     Indication: HYPERTENSION
     Dosage: 5 MG, QD
  8. BYSTOLIC [Concomitant]
     Indication: HYPERTENSION
     Dosage: 5 MG, QD
  9. SIMVASTATIN TABLETS, USP [Concomitant]
     Route: 048

REACTIONS (45)
  - Hip fracture [Not Recovered/Not Resolved]
  - Intramedullary rod insertion [Unknown]
  - Bone graft [Unknown]
  - Device failure [Unknown]
  - Intramedullary rod insertion [Unknown]
  - Intramedullary rod insertion [Unknown]
  - Fall [Recovering/Resolving]
  - Rib fracture [Unknown]
  - Stress fracture [Unknown]
  - Hip arthroplasty [Unknown]
  - Femur fracture [Unknown]
  - Low turnover osteopathy [Unknown]
  - Fracture nonunion [Unknown]
  - Fracture nonunion [Recovering/Resolving]
  - Oestrogen deficiency [Unknown]
  - Varicose vein [Unknown]
  - Chronic sinusitis [Not Recovered/Not Resolved]
  - Sinusitis [Unknown]
  - Benign pericardium neoplasm [Unknown]
  - Blood cortisol increased [Unknown]
  - Arthroscopy [Unknown]
  - Spinal osteoarthritis [Unknown]
  - Renal cyst [Unknown]
  - Migraine [Not Recovered/Not Resolved]
  - Bone disorder [Unknown]
  - Dyspareunia [Unknown]
  - Anxiety [Unknown]
  - Intervertebral disc degeneration [Unknown]
  - Cervical spinal stenosis [Unknown]
  - Synovial cyst [Unknown]
  - Meniscus injury [Unknown]
  - Osteoarthritis [Unknown]
  - Medical device removal [Unknown]
  - Neck mass [Unknown]
  - Night sweats [Unknown]
  - Skin neoplasm excision [Unknown]
  - Melanocytic naevus [Unknown]
  - Aortic arteriosclerosis [Unknown]
  - Sleep apnoea syndrome [Unknown]
  - Depression [Unknown]
  - Sinus operation [Unknown]
  - Blood cholesterol increased [Unknown]
  - Asthenia [Recovering/Resolving]
  - Constipation [Unknown]
  - Headache [Unknown]
